FAERS Safety Report 8697413 (Version 2)
Quarter: 2012Q4

REPORT INFORMATION
  Report Type: Report from Study
  Country: DE (occurrence: DE)
  Receive Date: 20120801
  Receipt Date: 20121102
  Transmission Date: 20130627
  Serious: Yes (Other)
  Sender: FDA-Public Use
  Company Number: DE-ROCHE-1088424

PATIENT
  Age: 71 Year
  Sex: Female
  Weight: 75 kg

DRUGS (17)
  1. RITUXIMAB [Suspect]
     Indication: MALIGNANT LYMPHOID NEOPLASM
     Route: 050
     Dates: start: 20101012, end: 20120726
  2. VIANI FORTE [Concomitant]
     Indication: CHRONIC OBSTRUCTIVE PULMONARY DISEASE
     Dosage: 50/100
     Route: 065
  3. PREDNISOLONE [Concomitant]
     Indication: CHRONIC OBSTRUCTIVE PULMONARY DISEASE
     Route: 065
  4. BRONCHORETARD [Concomitant]
     Indication: CHRONIC OBSTRUCTIVE PULMONARY DISEASE
     Route: 065
  5. LISINOPRIL [Concomitant]
     Indication: HYPERTENSION
     Route: 065
     Dates: end: 20120307
  6. ALLOBETA [Concomitant]
     Indication: HYPERTENSION
     Route: 065
     Dates: end: 20120307
  7. OMEPRAZOL [Concomitant]
     Route: 065
  8. BENDAMUSTINE [Concomitant]
     Indication: NON-HODGKIN^S LYMPHOMA
     Route: 065
     Dates: end: 20120106
  9. TAVEGIL [Concomitant]
     Route: 065
     Dates: start: 20101012, end: 20120726
  10. RANITIDINE [Concomitant]
     Route: 065
     Dates: start: 20101012, end: 20120726
  11. KEVATRIL [Concomitant]
     Indication: VOMITING
     Route: 065
     Dates: start: 20101012, end: 20120726
  12. FORTECORTIN [Concomitant]
     Route: 065
     Dates: start: 20101012, end: 20120726
  13. PARACETAMOL [Concomitant]
     Route: 065
     Dates: start: 20101012, end: 20120726
  14. THEOPHYLLINE [Concomitant]
     Route: 065
  15. VERAPAMIL [Concomitant]
     Indication: HYPERTENSION
     Route: 065
  16. REKAWAN [Concomitant]
     Route: 065
  17. BROMELAIN [Concomitant]

REACTIONS (4)
  - Aspartate aminotransferase increased [Unknown]
  - Alanine aminotransferase increased [Unknown]
  - Liver injury [Unknown]
  - Hepatic steatosis [Unknown]
